FAERS Safety Report 20782660 (Version 1)
Quarter: 2022Q2

REPORT INFORMATION
  Report Type: Report from Study
  Country: US (occurrence: US)
  Receive Date: 20220504
  Receipt Date: 20220504
  Transmission Date: 20220720
  Serious: Yes (Hospitalization, Other)
  Sender: FDA-Public Use
  Company Number: US-MMM-Y9EJCWT6

PATIENT
  Sex: Male
  Weight: 78.798 kg

DRUGS (1)
  1. BELANTAMAB MAFODOTIN [Suspect]
     Active Substance: BELANTAMAB MAFODOTIN
     Indication: Plasma cell myeloma
     Dosage: 197 MG, Z, ONCE
     Dates: start: 20220404, end: 20220404

REACTIONS (5)
  - Sepsis [Unknown]
  - Plasma cell myeloma [Unknown]
  - Hospice care [Unknown]
  - General physical health deterioration [Unknown]
  - Drug ineffective [Unknown]
